FAERS Safety Report 8052441-1 (Version None)
Quarter: 2012Q1

REPORT INFORMATION
  Report Type: 
  Country: None (occurrence: None)
  Receive Date: 20120118
  Receipt Date: 20120111
  Transmission Date: 20120608
  Serious: Yes (Hospitalization, Other)
  Sender: FDA-Public Use
  Company Number: DE-PFIZER INC-2012008348

PATIENT
  Age: 54 Year
  Sex: Female

DRUGS (2)
  1. VENLAFAXINE HCL [Suspect]
     Dosage: 225 MG, 1X/DAY
     Dates: start: 20110501
  2. SEROQUEL [Suspect]

REACTIONS (3)
  - FEELING ABNORMAL [None]
  - DRUG LEVEL INCREASED [None]
  - AGGRESSION [None]
